FAERS Safety Report 23558992 (Version 1)
Quarter: 2024Q1

REPORT INFORMATION
  Report Type: Report from Study
  Country: US (occurrence: None)
  Receive Date: 20240223
  Receipt Date: 20240223
  Transmission Date: 20240410
  Serious: Yes (Hospitalization)
  Sender: FDA-Public Use
  Company Number: 2024A043774

PATIENT
  Sex: Male

DRUGS (1)
  1. FASENRA [Suspect]
     Active Substance: BENRALIZUMAB
     Indication: Chronic obstructive pulmonary disease
     Route: 058
     Dates: start: 20220615

REACTIONS (3)
  - Localised infection [Recovered/Resolved]
  - COVID-19 [Recovered/Resolved]
  - Product dose omission issue [Recovered/Resolved]
